FAERS Safety Report 10463775 (Version 2)
Quarter: 2014Q3

REPORT INFORMATION
  Report Type: Report from Study
  Country: CZ (occurrence: CZ)
  Receive Date: 20140919
  Receipt Date: 20140929
  Transmission Date: 20150326
  Serious: Yes (Death, Hospitalization, Other)
  Sender: FDA-Public Use
  Company Number: PHHY2014CZ119444

PATIENT
  Age: 66 Year
  Sex: Female

DRUGS (3)
  1. GLIVEC [Suspect]
     Active Substance: IMATINIB MESYLATE
     Indication: GASTROINTESTINAL STROMAL TUMOUR
     Dosage: 400 MG, DAILY
     Dates: start: 20140808, end: 20140912
  2. NOVALGIN [Concomitant]
     Active Substance: METAMIZOLE SODIUM
  3. TORECAN [Concomitant]
     Active Substance: THIETHYLPERAZINE MALATE
     Indication: NAUSEA

REACTIONS (6)
  - Acute myocardial infarction [Fatal]
  - Cardiac failure [Unknown]
  - Vomiting [Fatal]
  - Hepatorenal failure [Fatal]
  - Dehydration [Fatal]
  - Nausea [Fatal]

NARRATIVE: CASE EVENT DATE: 20140912
